FAERS Safety Report 5939439-1 (Version None)
Quarter: 2008Q4

REPORT INFORMATION
  Report Type: 
  Country: None (occurrence: None)
  Receive Date: 20081029
  Receipt Date: 20081014
  Transmission Date: 20090506
  Serious: Yes (Life-Threatening)
  Sender: FDA-Public Use
  Company Number: 20424

PATIENT
  Age: 15 Year
  Sex: Male
  Weight: 49.7 kg

DRUGS (2)
  1. ATRACURIUM BESYLATE [Suspect]
     Dosage: 25 MG FREQ
     Dates: start: 20081002
  2. THIOPENTAL SODIUM [Suspect]
     Dosage: 250 MG FREQ IV
     Route: 042

REACTIONS (4)
  - ANAPHYLACTIC REACTION [None]
  - BRONCHOSPASM [None]
  - CIRCULATORY COLLAPSE [None]
  - DRUG HYPERSENSITIVITY [None]
